FAERS Safety Report 9630962 (Version 2)
Quarter: 2013Q4

REPORT INFORMATION
  Report Type: Spontaneous
  Country: IT (occurrence: None)
  Receive Date: 20131011
  Receipt Date: 20131125
  Transmission Date: 20140711
  Serious: Yes (Other)
  Sender: FDA-Public Use
  Company Number: AUR-APL-2013-08356

PATIENT
  Age: 43 Year
  Sex: Female

DRUGS (3)
  1. PAROXETINE (PAROXETINE) [Suspect]
     Indication: PRODUCT USED FOR UNKNOWN INDICATION
     Dosage: SEP16.2013
     Route: 048
  2. XANAX (ALPRAZOLAM) [Suspect]
     Indication: PRODUCT USED FOR UNKNOWN INDICATION
     Dosage: SEP16,2013
     Route: 048
  3. MINIAS (LORMETAZEPAM) [Suspect]
     Indication: PRODUCT USED FOR UNKNOWN INDICATION
     Dosage: SEP16.2013.
     Route: 048

REACTIONS (4)
  - Confusional state [None]
  - Oxygen saturation decreased [None]
  - Sopor [None]
  - Refusal of treatment by patient [None]
